FAERS Safety Report 4932310-3 (Version None)
Quarter: 2006Q1

REPORT INFORMATION
  Report Type: 
  Country: None (occurrence: None)
  Receive Date: 20060228
  Receipt Date: 20060221
  Transmission Date: 20060701
  Serious: Yes (Life-Threatening)
  Sender: FDA-Public Use
  Company Number: 2006-138933-NL

PATIENT
  Age: 23 Year
  Sex: Female

DRUGS (6)
  1. VECURONIUM BROMIDE [Suspect]
     Indication: INDUCTION OF ANAESTHESIA
     Dosage: 10 MG ONCE INTRAVENOUS (NOS)
     Route: 042
     Dates: start: 20050420, end: 20050420
  2. MIDAZOLAM HYDROCHLORIDE [Suspect]
     Indication: INDUCTION OF ANAESTHESIA
     Dosage: 7 MG ONCE INTRAVENOUS (NOS)
     Route: 042
     Dates: start: 20050420, end: 20050420
  3. PROPOFOL [Suspect]
     Indication: INDUCTION OF ANAESTHESIA
     Dosage: INTRAVENOUS DRIP
     Route: 041
     Dates: start: 20050420, end: 20050420
  4. FENTANYL CITRATE [Suspect]
     Indication: INDUCTION OF ANAESTHESIA
     Dosage: INTRAVENOUS    (NOS)
     Route: 042
     Dates: start: 20050420, end: 20050420
  5. FENTANYL CITRATE [Suspect]
     Indication: INDUCTION OF ANAESTHESIA
     Dosage: INTRAVENOUS    (NOS)
     Route: 042
     Dates: start: 20050420, end: 20050420
  6. CEFAZOLIN SODIUM [Suspect]
     Indication: INFECTION PROPHYLAXIS
     Dosage: 1 G ONCE INTRAVENOUS (NOS)
     Route: 042
     Dates: start: 20050420, end: 20050420

REACTIONS (2)
  - ANAPHYLACTOID SHOCK [None]
  - BLOOD PRESSURE DIASTOLIC INCREASED [None]
